FAERS Safety Report 5726880-5 (Version None)
Quarter: 2008Q2

REPORT INFORMATION
  Report Type: 
  Country: None (occurrence: None)
  Receive Date: 20080502
  Receipt Date: 20080421
  Transmission Date: 20081010
  Serious: Yes (Other)
  Sender: FDA-Public Use
  Company Number: NL-PFIZER INC-2008036297

PATIENT
  Age: 48 Year
  Sex: Male
  Weight: 88 kg

DRUGS (1)
  1. GENOTROPIN [Suspect]
     Route: 058

REACTIONS (2)
  - FATIGUE [None]
  - HEPATIC ENZYME INCREASED [None]
